FAERS Safety Report 5939702-4 (Version None)
Quarter: 2008Q4

REPORT INFORMATION
  Report Type: 
  Country: None (occurrence: None)
  Receive Date: 20081030
  Receipt Date: 20081030
  Transmission Date: 20090506
  Serious: Yes (Disabling)
  Sender: FDA-Public Use
  Company Number: None

PATIENT
  Age: 52 Year
  Sex: Female
  Weight: 145.151 kg

DRUGS (1)
  1. ADVAIR DISKUS 250/50 [Suspect]
     Indication: ASTHMA
     Dosage: ORIGINALLY 2X A DAY, NOW 1X ONCE A DAY INTRACAVERNOUS, AT LEAST 3 YEARS
     Route: 017

REACTIONS (2)
  - ABNORMAL SENSATION IN EYE [None]
  - CORNEAL ABRASION [None]
